FAERS Safety Report 25926128 (Version 3)
Quarter: 2025Q4

REPORT INFORMATION
  Report Type: Spontaneous
  Country: US (occurrence: US)
  Receive Date: 20251015
  Receipt Date: 20251110
  Transmission Date: 20260119
  Serious: Yes (Life-Threatening, Hospitalization, Other)
  Sender: SANOFI AVENTIS
  Company Number: US-MLMSERVICE-20251006-PI667942-00101-1

PATIENT
  Sex: Male
  Weight: 19.9 kg

DRUGS (31)
  1. OXALIPLATIN [Suspect]
     Active Substance: OXALIPLATIN
     Indication: Hepatic cancer recurrent
     Dosage: UNK
     Dates: start: 2024, end: 2025
  2. OXALIPLATIN [Suspect]
     Active Substance: OXALIPLATIN
     Indication: Hepatoblastoma
  3. OXALIPLATIN [Suspect]
     Active Substance: OXALIPLATIN
     Indication: Hepatocellular carcinoma
  4. CISPLATIN [Suspect]
     Active Substance: CISPLATIN
     Indication: Hepatic cancer recurrent
     Dosage: UNK, C5VD CYCLE 1,2,3,4
     Dates: start: 2022, end: 2022
  5. CISPLATIN [Suspect]
     Active Substance: CISPLATIN
     Indication: Hepatoblastoma
     Dosage: UNK, C5VD CYCLE 5 AND 6 (POST-LIVER TRANSPLANT)
     Dates: start: 2023, end: 2023
  6. CISPLATIN [Suspect]
     Active Substance: CISPLATIN
     Indication: Hepatocellular carcinoma
     Dosage: UNK, ELEVEN MONTHS POST-TRANSPLANT
     Dates: start: 2024, end: 2024
  7. DOXORUBICIN [Suspect]
     Active Substance: DOXORUBICIN
     Indication: Hepatic cancer recurrent
     Dosage: UNK, C5VD CYCLE 1,2,3,4
     Dates: start: 2022, end: 2022
  8. DOXORUBICIN [Suspect]
     Active Substance: DOXORUBICIN
     Indication: Hepatoblastoma
     Dosage: UNK, C5VD CYCLE 5 AND 6 (POST-LIVER TRANSPLANT)
     Dates: start: 2023, end: 2023
  9. DOXORUBICIN [Suspect]
     Active Substance: DOXORUBICIN
     Indication: Hepatocellular carcinoma
  10. FLUOROURACIL [Suspect]
     Active Substance: FLUOROURACIL
     Indication: Hepatic cancer recurrent
     Dosage: UNK, C5VD CYCLE 1,2,3,4
     Dates: start: 2022, end: 2022
  11. FLUOROURACIL [Suspect]
     Active Substance: FLUOROURACIL
     Indication: Hepatoblastoma
     Dosage: UNK, C5VD CYCLE 5 AND 6 (POST-LIVER TRANSPLANT)
     Dates: start: 2023, end: 2023
  12. FLUOROURACIL [Suspect]
     Active Substance: FLUOROURACIL
     Indication: Hepatocellular carcinoma
  13. VINCRISTINE [Suspect]
     Active Substance: VINCRISTINE
     Indication: Hepatic cancer recurrent
     Dosage: UNK, C5VD CYCLE 1,2,3,4
     Dates: start: 2022, end: 2022
  14. VINCRISTINE [Suspect]
     Active Substance: VINCRISTINE
     Indication: Hepatoblastoma
     Dosage: UNK, C5VD CYCLE 5 AND 6 (POST-LIVER TRANSPLANT)
     Dates: start: 2023, end: 2023
  15. VINCRISTINE [Suspect]
     Active Substance: VINCRISTINE
     Indication: Hepatocellular carcinoma
     Dosage: UNK, CYCLE 1
     Dates: start: 2022, end: 2023
  16. VINCRISTINE [Suspect]
     Active Substance: VINCRISTINE
     Dosage: UNK, CYCLE 2
     Dates: start: 2023, end: 2023
  17. CARBOPLATIN [Suspect]
     Active Substance: CARBOPLATIN
     Indication: Hepatic cancer recurrent
     Dosage: UNK, POST-LIVER TRANSPLANT
     Dates: start: 2023, end: 2023
  18. CARBOPLATIN [Suspect]
     Active Substance: CARBOPLATIN
     Indication: Hepatoblastoma
  19. CARBOPLATIN [Suspect]
     Active Substance: CARBOPLATIN
     Indication: Hepatocellular carcinoma
  20. ETOPOSIDE [Suspect]
     Active Substance: ETOPOSIDE
     Indication: Hepatic cancer recurrent
     Dosage: UNK, POST-LIVER TRANSPLANT
     Dates: start: 2023, end: 2023
  21. ETOPOSIDE [Suspect]
     Active Substance: ETOPOSIDE
     Indication: Hepatoblastoma
  22. ETOPOSIDE [Suspect]
     Active Substance: ETOPOSIDE
     Indication: Hepatocellular carcinoma
  23. VORINOSTAT [Suspect]
     Active Substance: VORINOSTAT
     Indication: Hepatic cancer recurrent
     Dosage: UNK, ELEVEN MONTHS POST-TRANSPLANT
     Dates: start: 2024, end: 2024
  24. VORINOSTAT [Suspect]
     Active Substance: VORINOSTAT
     Indication: Hepatoblastoma
  25. VORINOSTAT [Suspect]
     Active Substance: VORINOSTAT
     Indication: Hepatocellular carcinoma
  26. IRINOTECAN [Suspect]
     Active Substance: IRINOTECAN
     Indication: Hepatic cancer recurrent
     Dosage: UNK, CYCLE 1
     Dates: start: 2022, end: 2023
  27. IRINOTECAN [Suspect]
     Active Substance: IRINOTECAN
     Indication: Hepatoblastoma
     Dosage: UNK, CYCLE 1
     Dates: start: 2023, end: 2023
  28. IRINOTECAN [Suspect]
     Active Substance: IRINOTECAN
     Indication: Hepatocellular carcinoma
  29. GEMCITABINE [Suspect]
     Active Substance: GEMCITABINE
     Indication: Hepatic cancer recurrent
     Dosage: UNK
     Dates: start: 2024, end: 2025
  30. GEMCITABINE [Suspect]
     Active Substance: GEMCITABINE
     Indication: Hepatoblastoma
  31. GEMCITABINE [Suspect]
     Active Substance: GEMCITABINE
     Indication: Hepatocellular carcinoma

REACTIONS (6)
  - Radiation hepatitis [Recovered/Resolved]
  - Ascites [Recovered/Resolved]
  - Portal hypertension [Recovered/Resolved]
  - Congestive hepatopathy [Recovered/Resolved]
  - Fibrosis [Recovered/Resolved]
  - Hypertransaminasaemia [Recovered/Resolved]

NARRATIVE: CASE EVENT DATE: 20240101
